APPROVED DRUG PRODUCT: NIPRIDE RTU IN SODIUM CHLORIDE 0.9%
Active Ingredient: SODIUM NITROPRUSSIDE
Strength: 20MG/100ML (0.2MG/ML)
Dosage Form/Route: SOLUTION;INTRAVENOUS
Application: N209387 | Product #003 | TE Code: AP
Applicant: EXELA PHARMA SCIENCES LLC
Approved: Jul 13, 2018 | RLD: Yes | RS: Yes | Type: RX